FAERS Safety Report 21119580 (Version 1)
Quarter: 2022Q3

REPORT INFORMATION
  Report Type: Spontaneous
  Country: CN (occurrence: CN)
  Receive Date: 20220722
  Receipt Date: 20220722
  Transmission Date: 20221026
  Serious: Yes (Other)
  Sender: FDA-Public Use
  Company Number: CN-SLATE RUN PHARMACEUTICALS-22CN001207

PATIENT

DRUGS (5)
  1. AZITHROMYCIN [Suspect]
     Active Substance: AZITHROMYCIN
     Indication: Pneumonia mycoplasmal
     Dosage: UNK
     Dates: start: 20220113, end: 202201
  2. RIVAROXABAN [Suspect]
     Active Substance: RIVAROXABAN
     Indication: Thrombosis
     Dosage: 10 MILLIGRAM, BID
     Dates: start: 202201
  3. RIVAROXABAN [Suspect]
     Active Substance: RIVAROXABAN
     Dosage: 5 MILLIGRAM, BID
     Dates: start: 20220114, end: 202201
  4. RIVAROXABAN [Suspect]
     Active Substance: RIVAROXABAN
     Dosage: 10 MILLIGRAM, BID
     Dates: start: 20220113, end: 20220113
  5. UROKINASE [Suspect]
     Active Substance: UROKINASE
     Indication: Thrombosis
     Dosage: UNK
     Dates: start: 20220113

REACTIONS (5)
  - Pulmonary thrombosis [Recovered/Resolved]
  - Vena cava thrombosis [Recovered/Resolved]
  - Renal vein thrombosis [Recovered/Resolved]
  - Pelvic venous thrombosis [Recovered/Resolved]
  - Therapy non-responder [Unknown]

NARRATIVE: CASE EVENT DATE: 20220101
